FAERS Safety Report 6389729-6 (Version None)
Quarter: 2009Q4

REPORT INFORMATION
  Report Type: 
  Country: None (occurrence: None)
  Receive Date: 20091002
  Receipt Date: 20091002
  Transmission Date: 20100525
  Serious: Yes (Hospitalization)
  Sender: FDA-Public Use
  Company Number: None

PATIENT
  Age: 67 Year
  Sex: Male
  Weight: 129 kg

DRUGS (1)
  1. FRAGMIN [Suspect]
     Indication: ATRIAL FIBRILLATION
     Dosage: 15,000 UNITS Q12H SQ
     Route: 058
     Dates: start: 20090905, end: 20090916

REACTIONS (1)
  - CATHETER SITE HAEMORRHAGE [None]
